FAERS Safety Report 18340315 (Version 5)
Quarter: 2021Q1

REPORT INFORMATION
  Report Type: Report from Study
  Country: US (occurrence: US)
  Receive Date: 20201002
  Receipt Date: 20210302
  Transmission Date: 20210419
  Serious: Yes (Other)
  Sender: FDA-Public Use
  Company Number: NVSC2020US264123

PATIENT
  Age: 65 Year
  Sex: Male

DRUGS (4)
  1. ENTRESTO [Suspect]
     Active Substance: SACUBITRIL\VALSARTAN
     Dosage: UNK (49/51)
     Route: 065
  2. ENTRESTO [Suspect]
     Active Substance: SACUBITRIL\VALSARTAN
     Indication: PRODUCT USED FOR UNKNOWN INDICATION
     Dosage: 97.10 MG, BID (97/103)
     Route: 048
     Dates: start: 2018
  3. ENTRESTO [Suspect]
     Active Substance: SACUBITRIL\VALSARTAN
     Dosage: 200 MG
     Route: 048
  4. ELIQUIS [Suspect]
     Active Substance: APIXABAN
     Indication: PRODUCT USED FOR UNKNOWN INDICATION
     Dosage: UNK UNK, UNKNOWN
     Route: 065

REACTIONS (14)
  - Aphonia [Unknown]
  - Dyspnoea [Unknown]
  - Laziness [Unknown]
  - Hypertrichosis [Unknown]
  - Fatigue [Unknown]
  - Eructation [Unknown]
  - Atrial fibrillation [Unknown]
  - Chest pain [Unknown]
  - Vagus nerve disorder [Unknown]
  - Thinking abnormal [Unknown]
  - Product dose omission issue [Unknown]
  - Drug ineffective [Unknown]
  - Yawning [Unknown]
  - Throat clearing [Unknown]

NARRATIVE: CASE EVENT DATE: 202006
